FAERS Safety Report 8959101 (Version 7)
Quarter: 2013Q2

REPORT INFORMATION
  Report Type: Report from Study
  Country: AT (occurrence: AT)
  Receive Date: 20121212
  Receipt Date: 20130513
  Transmission Date: 20140414
  Serious: Yes (Hospitalization)
  Sender: FDA-Public Use
  Company Number: AT-ROCHE-1164776

PATIENT
  Age: 64 Year
  Sex: Female

DRUGS (14)
  1. TELAPREVIR [Suspect]
     Indication: CHRONIC HEPATITIS C
     Route: 048
     Dates: start: 20121022, end: 20121112
  2. RIBAVIRIN [Suspect]
     Indication: CHRONIC HEPATITIS C
     Route: 048
     Dates: start: 20121022, end: 20121106
  3. RIBAVIRIN [Suspect]
     Route: 048
     Dates: start: 20121107, end: 20121113
  4. RIBAVIRIN [Suspect]
     Route: 048
     Dates: start: 20120507, end: 20121112
  5. RIBAVIRIN [Suspect]
     Route: 048
     Dates: start: 20121113
  6. PEG-INTERFERON ALFA 2A [Suspect]
     Indication: CHRONIC HEPATITIS C
     Route: 058
     Dates: start: 20121022, end: 20121112
  7. NOTEN [Concomitant]
     Route: 065
  8. LIPITOR [Concomitant]
     Route: 065
  9. PANADOL [Concomitant]
     Route: 065
     Dates: start: 20121022
  10. ZOFRAN [Concomitant]
     Route: 065
     Dates: start: 20121023
  11. ESOMEPRAZOLE [Concomitant]
     Route: 065
  12. FENOFIBRATE [Concomitant]
     Route: 065
     Dates: start: 201205
  13. IRBESARTAN [Concomitant]
     Route: 065
  14. LERCANIDIPINE [Concomitant]
     Route: 065

REACTIONS (2)
  - Renal failure acute [Recovered/Resolved]
  - Anaemia [Recovered/Resolved]
